FAERS Safety Report 14031813 (Version 1)
Quarter: 2017Q4

REPORT INFORMATION
  Report Type: Spontaneous
  Country: US (occurrence: US)
  Receive Date: 20171002
  Receipt Date: 20171002
  Transmission Date: 20180321
  Serious: Yes (Other)
  Sender: FDA-Public Use
  Company Number: US-BAYER-2017-183305

PATIENT
  Age: 27 Year
  Sex: Female

DRUGS (2)
  1. MIRENA [Suspect]
     Active Substance: LEVONORGESTREL
     Indication: CONTRACEPTION
     Dosage: 20 MCG/24HR, CONT
     Route: 015
     Dates: start: 20170612
  2. MIRENA [Suspect]
     Active Substance: LEVONORGESTREL
     Indication: CONTRACEPTION
     Dosage: 20 MCG/24HR, CONT
     Route: 015
     Dates: start: 20170612

REACTIONS (11)
  - Procedural pain [None]
  - Jaundice [None]
  - Contusion [None]
  - Actinomycosis [None]
  - Skin infection [None]
  - Pelvic pain [None]
  - Oral infection [None]
  - Vaginal infection [None]
  - Pelvic infection [None]
  - Contraindicated device used [None]
  - Device dislocation [None]

NARRATIVE: CASE EVENT DATE: 2017
